FAERS Safety Report 16273949 (Version 1)
Quarter: 2019Q2

REPORT INFORMATION
  Report Type: Spontaneous
  Country: US (occurrence: US)
  Receive Date: 20190401
  Receipt Date: 20190401
  Transmission Date: 20190711
  Serious: No
  Sender: FDA-Public Use
  Company Number: None

PATIENT
  Age: 71 Year
  Sex: Female

DRUGS (2)
  1. ENBREL [Suspect]
     Active Substance: ETANERCEPT
     Indication: PSORIASIS
     Dosage: ?          OTHER FREQUENCY:2 X WK AS DIRECTED;?
     Route: 058
     Dates: start: 201808
  2. ATIVAN [Suspect]
     Active Substance: LORAZEPAM

REACTIONS (1)
  - Malaise [None]
